FAERS Safety Report 21469463 (Version 1)
Quarter: 2022Q4

REPORT INFORMATION
  Report Type: Spontaneous
  Country: US (occurrence: US)
  Receive Date: 20221018
  Receipt Date: 20221018
  Transmission Date: 20230113
  Serious: Yes (Life-Threatening, Hospitalization)
  Sender: FDA-Public Use
  Company Number: US-JNJFOC-20221023782

PATIENT
  Age: 5 Decade
  Sex: Female
  Weight: 90.2 kg

DRUGS (4)
  1. XARELTO [Suspect]
     Active Substance: RIVAROXABAN
     Indication: Product used for unknown indication
     Route: 048
  2. REMODULIN [Suspect]
     Active Substance: TREPROSTINIL
     Indication: Pulmonary arterial hypertension
     Dosage: CONCENTRATION 5 MG/ML
     Route: 058
     Dates: start: 20190613
  3. REMODULIN [Suspect]
     Active Substance: TREPROSTINIL
     Route: 058
  4. DEVICE\POLYURETHANE [Suspect]
     Active Substance: DEVICE\POLYURETHANE
     Indication: Product used for unknown indication
     Route: 065

REACTIONS (6)
  - Cardiac failure [Unknown]
  - Loss of consciousness [Unknown]
  - Product dose omission issue [Unknown]
  - Gait disturbance [Unknown]
  - Vomiting [Unknown]
  - Weight decreased [Unknown]

NARRATIVE: CASE EVENT DATE: 20190101
